FAERS Safety Report 17564885 (Version 1)
Quarter: 2020Q1

REPORT INFORMATION
  Report Type: Spontaneous
  Country: DE (occurrence: DE)
  Receive Date: 20200320
  Receipt Date: 20200320
  Transmission Date: 20200409
  Serious: Yes (Other)
  Sender: FDA-Public Use
  Company Number: DE-TEVA-2020-DE-1205105

PATIENT
  Age: 27 Year
  Sex: Female

DRUGS (1)
  1. FEMIGYNE-RATIOPHARM N [Suspect]
     Active Substance: ETHINYL ESTRADIOL\LEVONORGESTREL
     Dosage: ONE TABLET CONTAINS 0.03 MG ETHINYLESTRADIOL AND 0.15 MG LEVONORGESTREL
     Route: 048
     Dates: start: 2012, end: 201910

REACTIONS (1)
  - Cerebral infarction [Unknown]

NARRATIVE: CASE EVENT DATE: 201910
